FAERS Safety Report 23074802 (Version 1)
Quarter: 2023Q4

REPORT INFORMATION
  Report Type: Spontaneous
  Country: CA (occurrence: CA)
  Receive Date: 20231017
  Receipt Date: 20231017
  Transmission Date: 20240109
  Serious: Yes (Other)
  Sender: FDA-Public Use
  Company Number: CA-JNJFOC-20231011978

PATIENT
  Sex: Female

DRUGS (1)
  1. RISPERDAL [Suspect]
     Active Substance: RISPERIDONE
     Indication: Product used for unknown indication
     Dosage: 10 YEARS
     Route: 065

REACTIONS (21)
  - Choking [Unknown]
  - Altered state of consciousness [Unknown]
  - Menstruation irregular [Unknown]
  - Pain [Unknown]
  - Anxiety [Unknown]
  - Tremor [Unknown]
  - Muscle rigidity [Unknown]
  - Dizziness [Unknown]
  - Poor quality sleep [Unknown]
  - Vision blurred [Unknown]
  - Increased appetite [Unknown]
  - Weight fluctuation [Unknown]
  - Hormone level abnormal [Unknown]
  - Somnolence [Unknown]
  - Restlessness [Unknown]
  - Dysphagia [Unknown]
  - Panic attack [Unknown]
  - Speech disorder [Unknown]
  - Cognitive disorder [Unknown]
  - Fall [Unknown]
  - Off label use [Unknown]
